FAERS Safety Report 9994861 (Version 1)
Quarter: 2014Q1

REPORT INFORMATION
  Report Type: Spontaneous
  Country: US (occurrence: None)
  Receive Date: 20140306
  Receipt Date: 20140306
  Transmission Date: 20141002
  Serious: Yes (Other)
  Sender: FDA-Public Use
  Company Number: COL_15292_2014

PATIENT
  Age: 36 Year
  Sex: Male

DRUGS (1)
  1. COLGATE TOOTHPASTE SENSITIVE PRORELIEF WHITE COOL MINT [Suspect]
     Indication: PRODUCT USED FOR UNKNOWN INDICATION
     Route: 048
     Dates: start: 201402, end: 201402

REACTIONS (11)
  - Hypersensitivity [None]
  - Lip swelling [None]
  - Erythema [None]
  - Erythema [None]
  - Throat tightness [None]
  - Dyspnoea [None]
  - Rash macular [None]
  - Urticaria [None]
  - Pruritus generalised [None]
  - Drug ineffective [None]
  - Feeling abnormal [None]
